FAERS Safety Report 15166289 (Version 2)
Quarter: 2020Q1

REPORT INFORMATION
  Report Type: Report from Study
  Country: BE (occurrence: BE)
  Receive Date: 20180719
  Receipt Date: 20200121
  Transmission Date: 20200409
  Serious: Yes (Death, Hospitalization, Other)
  Sender: FDA-Public Use
  Company Number: BE-MYLANLABS-2018M1052075

PATIENT
  Age: 81 Year
  Sex: Female
  Weight: 51 kg

DRUGS (11)
  1. BEVACIZUMAB. [Suspect]
     Active Substance: BEVACIZUMAB
     Dosage: 753 MILLIGRAM, Q3W
     Route: 042
     Dates: start: 20180306
  2. MIDAZOLAM MYLAN [Concomitant]
     Active Substance: MIDAZOLAM HYDROCHLORIDE
     Indication: SEDATIVE THERAPY
     Dosage: UNK
     Route: 065
     Dates: start: 20180405, end: 20180405
  3. CHOLEMED [Concomitant]
     Dosage: UNK
     Route: 065
  4. CARBOPLATIN. [Suspect]
     Active Substance: CARBOPLATIN
     Indication: OVARIAN CANCER
     Dosage: LAST DOSE 2 (UNIT NOT REPORTED)
     Route: 042
     Dates: start: 20180123
  5. RANITIDINE. [Concomitant]
     Active Substance: RANITIDINE
     Dosage: UNK
     Route: 065
     Dates: start: 2016, end: 20180206
  6. PANTOPRAZOLE [Concomitant]
     Active Substance: PANTOPRAZOLE
     Dosage: UNK
     Route: 065
     Dates: start: 20180207
  7. BEVACIZUMAB. [Suspect]
     Active Substance: BEVACIZUMAB
     Indication: OVARIAN CANCER
     Dosage: RECEIVED DOSE OF 756 (UNIT NOT REPORTED)
     Route: 042
     Dates: start: 20180123
  8. VALSARTAN. [Concomitant]
     Active Substance: VALSARTAN
     Dosage: UNK
     Route: 065
     Dates: start: 20180212
  9. PACLITAXEL. [Suspect]
     Active Substance: PACLITAXEL
     Indication: OVARIAN CANCER
     Dosage: 1 DOSAGE FORM, QW
     Route: 042
     Dates: start: 20180123
  10. PACLITAXEL. [Suspect]
     Active Substance: PACLITAXEL
     Dosage: 45 MG/M2, QW
     Route: 042
     Dates: start: 20180327
  11. CARBOPLATIN. [Suspect]
     Active Substance: CARBOPLATIN
     Dosage: DOSE 2.0 (UNIT NOT REPORTED)
     Route: 042
     Dates: start: 20180327

REACTIONS (15)
  - Epistaxis [Not Recovered/Not Resolved]
  - Nausea [Not Recovered/Not Resolved]
  - Abdominal pain [Not Recovered/Not Resolved]
  - Hypertension [Not Recovered/Not Resolved]
  - Dysgeusia [Not Recovered/Not Resolved]
  - Neuropathy peripheral [Not Recovered/Not Resolved]
  - Skin fissures [Not Recovered/Not Resolved]
  - Dysuria [Recovered/Resolved]
  - Sinusitis [Recovered/Resolved]
  - Hypotension [Not Recovered/Not Resolved]
  - Small intestinal perforation [Fatal]
  - Headache [Not Recovered/Not Resolved]
  - Constipation [Not Recovered/Not Resolved]
  - Vertigo [Not Recovered/Not Resolved]
  - Anaemia [Recovered/Resolved]

NARRATIVE: CASE EVENT DATE: 20180124
